FAERS Safety Report 8483246-5 (Version None)
Quarter: 2012Q2

REPORT INFORMATION
  Report Type: 
  Country: None (occurrence: None)
  Receive Date: 20120625
  Receipt Date: 20120614
  Transmission Date: 20120825
  Serious: Yes (Other)
  Sender: FDA-Public Use
  Company Number: AU-1192772

PATIENT

DRUGS (1)
  1. TRIESENCE [Suspect]
     Dosage: INTRAOCULAR
     Route: 031
     Dates: start: 20120516, end: 20120516

REACTIONS (2)
  - FUNGAL TEST POSITIVE [None]
  - ENDOPHTHALMITIS [None]
